FAERS Safety Report 25619398 (Version 1)
Quarter: 2025Q3

REPORT INFORMATION
  Report Type: Spontaneous
  Country: MA (occurrence: MA)
  Receive Date: 20250729
  Receipt Date: 20250729
  Transmission Date: 20251020
  Serious: Yes (Hospitalization, Disabling)
  Sender: Alora Pharma
  Company Number: MA-ACELLA PHARMACEUTICALS, LLC-2025ALO02355

PATIENT
  Age: 68 Year
  Sex: Male

DRUGS (1)
  1. AMIODARONE HYDROCHLORIDE [Suspect]
     Active Substance: AMIODARONE HYDROCHLORIDE
     Indication: Ventricular tachycardia
     Dates: start: 2021, end: 2023

REACTIONS (1)
  - Neuromyopathy [Recovered/Resolved]

NARRATIVE: CASE EVENT DATE: 20230101
